FAERS Safety Report 11871611 (Version 1)
Quarter: 2015Q4

REPORT INFORMATION
  Report Type: Spontaneous
  Country: US (occurrence: None)
  Receive Date: 20151224
  Receipt Date: 20151224
  Transmission Date: 20160305
  Serious: No
  Sender: FDA-Public Use
  Company Number: None

PATIENT
  Age: 23 Year
  Sex: Male

DRUGS (1)
  1. VIVITROL [Suspect]
     Active Substance: NALTREXONE
     Indication: DRUG DEPENDENCE
     Route: 030
     Dates: start: 20151106, end: 20151223

REACTIONS (4)
  - Erythema [None]
  - Skin disorder [None]
  - Acarodermatitis [None]
  - Pruritus [None]

NARRATIVE: CASE EVENT DATE: 20151216
